FAERS Safety Report 8352761-7 (Version None)
Quarter: 2012Q1

REPORT INFORMATION
  Report Type: 
  Country: None (occurrence: None)
  Receive Date: 20120315
  Receipt Date: 20110425
  Transmission Date: 20120608
  Serious: No
  Sender: FDA-Public Use
  Company Number: PHHY2011US34913

PATIENT
  Age: 60 Year
  Sex: Female

DRUGS (2)
  1. ASPIRIN [Concomitant]
  2. GILENYA [Suspect]
     Indication: MULTIPLE SCLEROSIS
     Dates: start: 20110322

REACTIONS (2)
  - BLISTER [None]
  - CONTUSION [None]
